FAERS Safety Report 20761510 (Version 1)
Quarter: 2022Q2

REPORT INFORMATION
  Report Type: Spontaneous
  Country: US (occurrence: US)
  Receive Date: 20220428
  Receipt Date: 20220428
  Transmission Date: 20220721
  Serious: Yes (Hospitalization, Other)
  Sender: FDA-Public Use
  Company Number: US-Shilpa Medicare Limited-SML-US-2022-00422

PATIENT
  Age: 70 Year
  Sex: Female

DRUGS (5)
  1. DOCETAXEL [Suspect]
     Active Substance: DOCETAXEL
     Indication: Uterine leiomyosarcoma
  2. GEMCITABINE [Suspect]
     Active Substance: GEMCITABINE
     Indication: Uterine leiomyosarcoma
  3. DOXORUBICIN [Suspect]
     Active Substance: DOXORUBICIN
     Indication: Uterine leiomyosarcoma
  4. OLARATUMAB [Suspect]
     Active Substance: OLARATUMAB
     Indication: Uterine leiomyosarcoma
  5. PAZOPANIB [Suspect]
     Active Substance: PAZOPANIB
     Indication: Uterine leiomyosarcoma

REACTIONS (3)
  - Disease progression [Unknown]
  - Drug ineffective [Unknown]
  - ALK gene rearrangement positive [Unknown]
